FAERS Safety Report 6126064-5 (Version None)
Quarter: 2009Q1

REPORT INFORMATION
  Report Type: 
  Country: None (occurrence: None)
  Receive Date: 20090318
  Receipt Date: 20090305
  Transmission Date: 20090719
  Serious: Yes (Hospitalization)
  Sender: FDA-Public Use
  Company Number: 02100-JPN-07-0179

PATIENT
  Age: 78 Year
  Sex: Male

DRUGS (4)
  1. PLETAL [Suspect]
     Indication: CEREBRAL INFARCTION
     Dosage: 100 MG, BID ORAL
     Route: 048
     Dates: start: 20070105
  2. ASPIRIN [Concomitant]
  3. ATORVASTATIN CALCIUM [Concomitant]
  4. PAROXETINE HYDROCHLORIDE (PAROXETINE HYDROCHLORIDE) UNKNOWN [Concomitant]

REACTIONS (2)
  - BRONCHITIS [None]
  - DYSPEPSIA [None]
